FAERS Safety Report 21473459 (Version 1)
Quarter: 2022Q4

REPORT INFORMATION
  Report Type: Spontaneous
  Country: US (occurrence: None)
  Receive Date: 20221017
  Receipt Date: 20221017
  Transmission Date: 20230113
  Serious: Yes (Life-Threatening)
  Sender: FDA-Public Use
  Company Number: None

PATIENT
  Sex: Male
  Weight: 72 kg

DRUGS (1)
  1. PEGASYS [Suspect]
     Active Substance: PEGINTERFERON ALFA-2A

REACTIONS (7)
  - Dizziness [None]
  - Nausea [None]
  - Vomiting [None]
  - Respiratory rate decreased [None]
  - Muscle spasms [None]
  - Somnolence [None]
  - Muscle twitching [None]

NARRATIVE: CASE EVENT DATE: 20221016
